FAERS Safety Report 11131521 (Version 1)
Quarter: 2015Q2

REPORT INFORMATION
  Report Type: Spontaneous
  Country: FR (occurrence: FR)
  Receive Date: 20150522
  Receipt Date: 20150522
  Transmission Date: 20150821
  Serious: Yes (Other)
  Sender: FDA-Public Use
  Company Number: FR-PFIZER INC-2015164594

PATIENT
  Age: 66 Year
  Sex: Male

DRUGS (3)
  1. VANCOMYCIN SANDOZ [Concomitant]
     Active Substance: VANCOMYCIN
     Indication: ANTIBIOTIC THERAPY
  2. TAZOCILLINE [Suspect]
     Active Substance: PIPERACILLIN SODIUM\TAZOBACTAM SODIUM
     Indication: ANTIBIOTIC THERAPY
     Dosage: 4 G, 3X/DAY
     Route: 042
     Dates: start: 20150320, end: 20150324
  3. AMIKACIN MYLAN [Concomitant]
     Active Substance: AMIKACIN
     Indication: ANTIBIOTIC THERAPY

REACTIONS (2)
  - Eye movement disorder [Recovered/Resolved]
  - Myoclonus [Recovered/Resolved]

NARRATIVE: CASE EVENT DATE: 20150323
